FAERS Safety Report 8315627-4 (Version None)
Quarter: 2012Q2

REPORT INFORMATION
  Report Type: 
  Country: None (occurrence: None)
  Receive Date: 20120426
  Receipt Date: 20120413
  Transmission Date: 20120825
  Serious: Yes (Life-Threatening, Hospitalization)
  Sender: FDA-Public Use
  Company Number: DE-ROCHE-1060668

PATIENT
  Sex: Female
  Weight: 54.5 kg

DRUGS (8)
  1. AMLODIPINE [Concomitant]
     Route: 065
  2. MIRCERA [Suspect]
     Indication: ANAEMIA
     Route: 042
     Dates: start: 20120113
  3. BISOPROLOL FUMARATE [Concomitant]
     Route: 065
  4. PANTOPRAZOLE [Concomitant]
     Route: 065
  5. DIGIMERCK [Concomitant]
     Route: 065
  6. RAMIPRIL [Concomitant]
     Route: 065
  7. LEVOTHYROXINE SODIUM [Concomitant]
     Route: 065
  8. MARCUMAR [Concomitant]
     Route: 065

REACTIONS (4)
  - BRONCHITIS [None]
  - HYPERTENSION [None]
  - HAEMOGLOBIN DECREASED [None]
  - CARDIAC DISORDER [None]
